FAERS Safety Report 20519346 (Version 1)
Quarter: 2022Q1

REPORT INFORMATION
  Report Type: Spontaneous
  Country: JP (occurrence: JP)
  Receive Date: 20220225
  Receipt Date: 20220225
  Transmission Date: 20220423
  Serious: Yes (Hospitalization, Other)
  Sender: FDA-Public Use
  Company Number: JP-GLAXOSMITHKLINE-JP2022JPN031713

PATIENT
  Age: 66 Year
  Sex: Male

DRUGS (2)
  1. VALTREX [Suspect]
     Active Substance: VALACYCLOVIR HYDROCHLORIDE
     Indication: Herpes zoster
     Dosage: 3000 MG/DAY
  2. LOXOPROFEN SODIUM [Suspect]
     Active Substance: LOXOPROFEN SODIUM
     Indication: Analgesic therapy
     Dosage: 180 MG/DAY

REACTIONS (5)
  - Toxic encephalopathy [Unknown]
  - Abnormal behaviour [Unknown]
  - Acute kidney injury [Unknown]
  - Altered state of consciousness [Recovering/Resolving]
  - Renal tubular disorder [Unknown]
